FAERS Safety Report 10144408 (Version 1)
Quarter: 2014Q2

REPORT INFORMATION
  Report Type: Spontaneous
  Country: CN (occurrence: CN)
  Receive Date: 20140430
  Receipt Date: 20140430
  Transmission Date: 20141212
  Serious: Yes (Other)
  Sender: FDA-Public Use
  Company Number: CN-PFIZER INC-2014113313

PATIENT
  Age: 24 Year
  Sex: Male

DRUGS (1)
  1. CELEBREX [Suspect]
     Dosage: 200 MG(ONE CAPSULE) ONCE DAILY
     Route: 048
     Dates: start: 20140427

REACTIONS (2)
  - Glaucoma [Unknown]
  - Eye pain [Unknown]
